FAERS Safety Report 14407015 (Version 1)
Quarter: 2018Q1

REPORT INFORMATION
  Report Type: Spontaneous
  Country: US (occurrence: US)
  Receive Date: 20180118
  Receipt Date: 20180118
  Transmission Date: 20180509
  Serious: Yes (Death)
  Sender: FDA-Public Use
  Company Number: US-TEVA-2018-US-846858

PATIENT
  Age: 62 Year
  Sex: Male

DRUGS (2)
  1. CLOZAPINE. [Suspect]
     Active Substance: CLOZAPINE
     Dosage: 12.5MG DAILY
     Route: 065
  2. CLOZAPINE. [Suspect]
     Active Substance: CLOZAPINE
     Dosage: TITRATED TO 75MG DAILY OVER 4 WEEKS
     Route: 065

REACTIONS (5)
  - Myocardial ischaemia [Fatal]
  - Sepsis [Fatal]
  - Sudden death [Fatal]
  - Pneumonia aspiration [Fatal]
  - Cardiac failure congestive [Fatal]
